FAERS Safety Report 8344372-4 (Version None)
Quarter: 2012Q2

REPORT INFORMATION
  Report Type: 
  Country: None (occurrence: None)
  Receive Date: 20120508
  Receipt Date: 20120424
  Transmission Date: 20120825
  Serious: Yes (Other)
  Sender: FDA-Public Use
  Company Number: AR-AMGEN-ARGSP2012027036

PATIENT
  Age: 30 Year
  Sex: Female

DRUGS (4)
  1. ENBREL [Suspect]
     Indication: RHEUMATOID ARTHRITIS
     Dosage: 50 MG, WEEKLY
     Dates: start: 20090401, end: 20111101
  2. CORTICOSTEROIDS [Concomitant]
     Dosage: UNK
     Dates: end: 20110801
  3. METHOTREXATE [Concomitant]
     Dosage: UNK
     Dates: end: 20110801
  4. ENBREL [Suspect]
     Dosage: 50 MG, WEEKLY
     Route: 058
     Dates: start: 20090401, end: 20110801

REACTIONS (1)
  - BENIGN HYDATIDIFORM MOLE [None]
